FAERS Safety Report 9187459 (Version 1)
Quarter: 2013Q1

REPORT INFORMATION
  Report Type: Spontaneous
  Country: US (occurrence: US)
  Receive Date: 20130325
  Receipt Date: 20130325
  Transmission Date: 20140127
  Serious: Yes (Other)
  Sender: FDA-Public Use
  Company Number: US-ROCHE-1205251

PATIENT
  Sex: Female

DRUGS (4)
  1. BONIVA [Suspect]
     Indication: PRODUCT USED FOR UNKNOWN INDICATION
     Route: 048
  2. CARBOPLATIN [Suspect]
     Indication: OVARIAN CANCER METASTATIC
     Route: 065
  3. DOXIL (UNITED STATES) [Suspect]
     Indication: OVARIAN CANCER METASTATIC
     Route: 065
  4. NEULASTA [Concomitant]
     Route: 065

REACTIONS (2)
  - Ovarian cancer metastatic [Not Recovered/Not Resolved]
  - Neutropenia [Not Recovered/Not Resolved]
